FAERS Safety Report 11419072 (Version 1)
Quarter: 2015Q3

REPORT INFORMATION
  Report Type: Spontaneous
  Country: US (occurrence: None)
  Receive Date: 20150824
  Receipt Date: 20150824
  Transmission Date: 20151125
  Serious: Yes (Other)
  Sender: FDA-Public Use
  Company Number: 2015SMT00259

PATIENT
  Age: 44 Year
  Sex: Male
  Weight: 136.1 kg

DRUGS (4)
  1. INSULIN [Concomitant]
     Active Substance: INSULIN NOS
  2. FISH OIL (DIETARY SUPPLEMENT) [Concomitant]
  3. REGRANEX [Suspect]
     Active Substance: BECAPLERMIN
     Indication: DIABETIC ULCER
     Route: 061
     Dates: start: 201507
  4. UNSPECIFIED ORAL DIABETES PILLS [Concomitant]

REACTIONS (2)
  - Application site swelling [None]
  - Osteomyelitis [None]

NARRATIVE: CASE EVENT DATE: 201507
